FAERS Safety Report 8172549-X (Version None)
Quarter: 2012Q1

REPORT INFORMATION
  Report Type: 
  Country: None (occurrence: None)
  Receive Date: 20120229
  Receipt Date: 20120217
  Transmission Date: 20120608
  Serious: Yes (Other)
  Sender: FDA-Public Use
  Company Number: US-BAYER-2011-121467

PATIENT
  Age: 21 Year
  Sex: Female
  Weight: 88 kg

DRUGS (3)
  1. GLUCOPHAGE [Concomitant]
  2. YASMIN [Suspect]
     Dosage: UNK
     Dates: start: 20020101, end: 20070101
  3. YAZ [Suspect]
     Dosage: UNK
     Dates: start: 20071201, end: 20080301

REACTIONS (5)
  - CHOLECYSTITIS CHRONIC [None]
  - INJURY [None]
  - GALLBLADDER DISORDER [None]
  - MENTAL DISORDER [None]
  - GALLBLADDER CHOLESTEROLOSIS [None]
